FAERS Safety Report 17451487 (Version 1)
Quarter: 2020Q1

REPORT INFORMATION
  Report Type: Spontaneous
  Country: US (occurrence: US)
  Receive Date: 20200223
  Receipt Date: 20200223
  Transmission Date: 20200409
  Serious: Yes (Life-Threatening)
  Sender: FDA-Public Use
  Company Number: None

PATIENT
  Age: 74 Year
  Sex: Female
  Weight: 69.75 kg

DRUGS (3)
  1. CARVEDILOL ER 80 [Suspect]
     Active Substance: CARVEDILOL PHOSPHATE
     Indication: BLOOD PRESSURE MEASUREMENT
     Dosage: ?          QUANTITY:1 CAPSULE(S);?
     Route: 048
     Dates: start: 20200211, end: 20200221
  2. CARVEDILOL ER 80 [Suspect]
     Active Substance: CARVEDILOL PHOSPHATE
     Indication: ADRENAL DISORDER
     Dosage: ?          QUANTITY:1 CAPSULE(S);?
     Route: 048
     Dates: start: 20200211, end: 20200221
  3. SYNTHROID 100 [Concomitant]

REACTIONS (4)
  - Chest pain [None]
  - Blood pressure increased [None]
  - Pain in extremity [None]
  - Product substitution issue [None]

NARRATIVE: CASE EVENT DATE: 20200221
